FAERS Safety Report 9143954 (Version 3)
Quarter: 2013Q3

REPORT INFORMATION
  Report Type: Spontaneous
  Country: GB (occurrence: GB)
  Receive Date: 20130306
  Receipt Date: 20130814
  Transmission Date: 20140515
  Serious: Yes (Other)
  Sender: FDA-Public Use
  Company Number: GB-WATSON-2013-03375

PATIENT
  Sex: Male

DRUGS (2)
  1. BACLOFEN (UNKNOWN) [Suspect]
     Indication: CERVICAL MYELOPATHY
     Dosage: 60 MG, DAILY
     Route: 065
  2. PREGABALIN (UNKNOWN) [Suspect]
     Indication: CERVICAL MYELOPATHY
     Route: 065

REACTIONS (7)
  - Anxiety [Unknown]
  - Dysphagia [Unknown]
  - Weight decreased [Unknown]
  - Malaise [Unknown]
  - Spinal cord compression [Unknown]
  - Pain [Unknown]
  - Sleep disorder [Unknown]
